FAERS Safety Report 6792486-2 (Version None)
Quarter: 2010Q2

REPORT INFORMATION
  Report Type: 
  Country: None (occurrence: None)
  Receive Date: 20100624
  Receipt Date: 20080819
  Transmission Date: 20101027
  Serious: Yes (Hospitalization, Other)
  Sender: FDA-Public Use
  Company Number: US-PFIZER INC-2008073023

PATIENT
  Sex: Female
  Weight: 99.8 kg

DRUGS (5)
  1. SOLU-MEDROL [Suspect]
  2. IBUPROFEN [Suspect]
     Indication: PREMEDICATION
     Dates: start: 20080101, end: 20080708
  3. IBUPROFEN [Suspect]
     Indication: CHILLS
  4. REBIF [Suspect]
     Indication: MULTIPLE SCLEROSIS
     Dosage: 3 EVERY 1 WEEKS
     Route: 058
     Dates: start: 20080314, end: 20080707
  5. PROVIGIL [Suspect]
     Indication: FATIGUE
     Dosage: 4 EVERY 1 WEEKS
     Dates: start: 20080627, end: 20080708

REACTIONS (3)
  - BLOOD PRESSURE DECREASED [None]
  - CYANOSIS [None]
  - HYPERSENSITIVITY [None]
